FAERS Safety Report 11767326 (Version 2)
Quarter: 2015Q4

REPORT INFORMATION
  Report Type: Spontaneous
  Country: US (occurrence: US)
  Receive Date: 20151123
  Receipt Date: 20151223
  Transmission Date: 20160304
  Serious: No
  Sender: FDA-Public Use
  Company Number: US-PFIZER INC-2015394536

PATIENT
  Age: 69 Year
  Sex: Male

DRUGS (2)
  1. ADVIL [Suspect]
     Active Substance: IBUPROFEN
     Indication: BACK PAIN
     Dosage: 400 MG, UNK (TWO TABLETS)
     Dates: start: 20151119
  2. ADVIL [Suspect]
     Active Substance: IBUPROFEN
     Indication: MYALGIA

REACTIONS (2)
  - Hypertension [Recovered/Resolved]
  - Feeling abnormal [Recovered/Resolved]

NARRATIVE: CASE EVENT DATE: 20151119
